FAERS Safety Report 8697780 (Version 2)
Quarter: 2013Q1

REPORT INFORMATION
  Report Type: Spontaneous
  Country: US (occurrence: US)
  Receive Date: 20120801
  Receipt Date: 20130315
  Transmission Date: 20140127
  Serious: Yes (Other)
  Sender: FDA-Public Use
  Company Number: US-ASTRAZENECA-2012SE47720

PATIENT
  Age: 56 Year
  Sex: Female

DRUGS (3)
  1. NEXIUM [Suspect]
     Indication: GASTROOESOPHAGEAL REFLUX DISEASE
     Route: 048
  2. LEXAPRO [Suspect]
     Route: 048
     Dates: start: 201206
  3. PROTONIX [Suspect]
     Route: 065

REACTIONS (8)
  - Procedural complication [Unknown]
  - Abasia [Unknown]
  - Abdominal pain upper [Recovered/Resolved]
  - Anxiety [Unknown]
  - Aphagia [Unknown]
  - Vomiting [Unknown]
  - Intentional drug misuse [Unknown]
  - Drug dose omission [Unknown]
